FAERS Safety Report 9021917 (Version 1)
Quarter: 2013Q1

REPORT INFORMATION
  Report Type: Spontaneous
  Country: US (occurrence: US)
  Receive Date: 20130118
  Receipt Date: 20130118
  Transmission Date: 20140127
  Serious: Yes (Death)
  Sender: FDA-Public Use
  Company Number: US-JNJFOC-20130106486

PATIENT
  Age: 40 Year
  Sex: Male

DRUGS (3)
  1. ACETAMINOPHEN/OXYCODONE [Suspect]
     Indication: SUICIDE ATTEMPT
     Route: 048
  2. METHADONE [Suspect]
     Indication: SUICIDE ATTEMPT
     Route: 048
  3. BENZODIAZEPINE NOS [Suspect]
     Indication: SUICIDE ATTEMPT
     Route: 048

REACTIONS (1)
  - Toxicity to various agents [Fatal]
